FAERS Safety Report 11831448 (Version 1)
Quarter: 2015Q4

REPORT INFORMATION
  Report Type: Spontaneous
  Country: US (occurrence: None)
  Receive Date: 20151211
  Receipt Date: 20151211
  Transmission Date: 20160305
  Serious: No
  Sender: FDA-Public Use
  Company Number: None

PATIENT
  Age: 65 Year
  Sex: Male
  Weight: 106.6 kg

DRUGS (8)
  1. ST. JOHN^S WORT [Concomitant]
     Active Substance: ST. JOHN^S WORT
  2. ZINC [Concomitant]
     Active Substance: ZINC\ZINC CHLORIDE
  3. VITAMIN B COMPLEX [Concomitant]
     Active Substance: CYANOCOBALAMIN\DEXPANTHENOL\NIACINAMIDE\PYRIDOXINE HYDROCHLORIDE\RIBOFLAVIN 5^-PHOSPHATE SODIUM\THIAMINE HYDROCHLORIDE\VITAMIN B COMPLEX
  4. VITAMIN D [Concomitant]
     Active Substance: CHOLECALCIFEROL
  5. LISINOPRIL 40 MG GOLDEN STATE MEDICAL SUPPLY, INC . [Suspect]
     Active Substance: LISINOPRIL
     Indication: BLOOD PRESSURE ABNORMAL
     Route: 048
     Dates: start: 20151012, end: 20151209
  6. UBIQUINOL [Concomitant]
     Active Substance: UBIQUINOL
  7. VITAMIN C [Concomitant]
     Active Substance: ASCORBIC ACID
  8. FISH OIL [Concomitant]
     Active Substance: FISH OIL

REACTIONS (4)
  - Product substitution issue [None]
  - Headache [None]
  - Product colour issue [None]
  - Product shape issue [None]

NARRATIVE: CASE EVENT DATE: 20151209
